FAERS Safety Report 18981772 (Version 1)
Quarter: 2021Q1

REPORT INFORMATION
  Report Type: Spontaneous
  Country: US (occurrence: US)
  Receive Date: 20210308
  Receipt Date: 20210308
  Transmission Date: 20210420
  Serious: Yes (Other)
  Sender: FDA-Public Use
  Company Number: US-UPSHER-SMITH LABORATORIES, LLC-2021USL00094

PATIENT
  Sex: Male

DRUGS (2)
  1. UNSPECIFIED MEDICATIONS [Suspect]
     Active Substance: UNSPECIFIED INGREDIENT
     Indication: BLINDNESS
  2. AMIODARONE HYDROCHLORIDE. [Suspect]
     Active Substance: AMIODARONE HYDROCHLORIDE
     Indication: ATRIAL FIBRILLATION
     Dosage: UNK
     Route: 048
     Dates: start: 201201

REACTIONS (10)
  - Cataract [Unknown]
  - Coordination abnormal [Unknown]
  - Unevaluable event [Not Recovered/Not Resolved]
  - Off label use [Unknown]
  - Macular degeneration [Unknown]
  - Optic atrophy [Unknown]
  - Vitreous floaters [Unknown]
  - Dizziness [Unknown]
  - Nausea [Unknown]
  - Optic nerve injury [Unknown]

NARRATIVE: CASE EVENT DATE: 201201
